FAERS Safety Report 5980237-0 (Version None)
Quarter: 2008Q4

REPORT INFORMATION
  Report Type: 
  Country: None (occurrence: None)
  Receive Date: 20081202
  Receipt Date: 20081202
  Transmission Date: 20090506
  Serious: Yes (Life-Threatening)
  Sender: FDA-Public Use
  Company Number: None

PATIENT
  Sex: Male
  Weight: 65.7716 kg

DRUGS (1)
  1. ZONISAMIDE [Suspect]
     Indication: EPILEPSY
     Dosage: 300 MG DAILY PO
     Route: 048
     Dates: start: 20081101, end: 20081129

REACTIONS (3)
  - ERYTHEMA [None]
  - OEDEMA [None]
  - RASH [None]
